FAERS Safety Report 14973736 (Version 1)
Quarter: 2018Q2

REPORT INFORMATION
  Report Type: Report from Study
  Country: DK (occurrence: DK)
  Receive Date: 20180605
  Receipt Date: 20180605
  Transmission Date: 20180711
  Serious: Yes (Hospitalization, Other)
  Sender: FDA-Public Use
  Company Number: DK-ASTELLAS-2018US025111

PATIENT
  Age: 48 Year
  Sex: Female

DRUGS (3)
  1. MIRABEGRON [Suspect]
     Active Substance: MIRABEGRON
     Route: 065
  2. MIRABEGRON [Suspect]
     Active Substance: MIRABEGRON
     Indication: PRODUCT USED FOR UNKNOWN INDICATION
     Route: 065
  3. MIRABEGRON [Suspect]
     Active Substance: MIRABEGRON
     Route: 065

REACTIONS (1)
  - Endocarditis [Recovered/Resolved]
